FAERS Safety Report 14193166 (Version 2)
Quarter: 2017Q4

REPORT INFORMATION
  Report Type: Spontaneous
  Country: US (occurrence: US)
  Receive Date: 20171115
  Receipt Date: 20171229
  Transmission Date: 20180321
  Serious: Yes (Hospitalization)
  Sender: FDA-Public Use
  Company Number: US-SAOL THERAPEUTICS-2017SAO01781

PATIENT
  Age: 55 Year
  Sex: Female

DRUGS (6)
  1. DILAUDID [Suspect]
     Active Substance: HYDROMORPHONE HYDROCHLORIDE
     Dosage: 1.24 MG, \DAY
     Route: 037
  2. BACLOFEN. [Suspect]
     Active Substance: BACLOFEN
     Route: 037
  3. BUPIVACAINE. [Suspect]
     Active Substance: BUPIVACAINE
     Dosage: 3 MG, \DAY
     Route: 037
  4. UNSPECIFIED INTRATHECAL MEDICATIONS [Suspect]
     Active Substance: UNSPECIFIED INGREDIENT
     Route: 037
  5. COMPOUNDED BACLOFEN [Suspect]
     Active Substance: BACLOFEN
     Indication: MUSCLE SPASTICITY
     Dosage: 260 ?G, \DAY
     Route: 037
  6. COMPOUNDED BACLOFEN [Suspect]
     Active Substance: BACLOFEN
     Indication: MUSCLE SPASTICITY

REACTIONS (6)
  - Urinary tract infection [Unknown]
  - Complication associated with device [Unknown]
  - Drug dose omission [Recovered/Resolved]
  - Muscle spasms [Unknown]
  - Pain [Unknown]
  - Device alarm issue [Unknown]

NARRATIVE: CASE EVENT DATE: 201710
